FAERS Safety Report 20336771 (Version 1)
Quarter: 2022Q1

REPORT INFORMATION
  Report Type: Spontaneous
  Country: US (occurrence: US)
  Receive Date: 20220114
  Receipt Date: 20220114
  Transmission Date: 20220423
  Serious: Yes (Other)
  Sender: FDA-Public Use
  Company Number: US-PFIZER INC-202200063413

PATIENT
  Age: 74 Year
  Sex: Male

DRUGS (1)
  1. RITUXIMAB [Suspect]
     Active Substance: RITUXIMAB
     Indication: Marginal zone lymphoma
     Dosage: UNK, WEEKLY (FOR 4 WEEKS)
     Dates: start: 202011

REACTIONS (1)
  - Metastatic malignant melanoma [Unknown]

NARRATIVE: CASE EVENT DATE: 20210301
